FAERS Safety Report 6662127-3 (Version None)
Quarter: 2010Q1

REPORT INFORMATION
  Report Type: 
  Country: None (occurrence: None)
  Receive Date: 20100331
  Receipt Date: 20100319
  Transmission Date: 20100710
  Serious: Yes (Life-Threatening, Other)
  Sender: FDA-Public Use
  Company Number: JP-PFIZER INC-2010030910

PATIENT
  Age: 61 Year
  Sex: Male

DRUGS (4)
  1. CHAMPIX [Suspect]
     Dosage: 2 MG/DAY
     Route: 048
     Dates: start: 20100130, end: 20100214
  2. NORVASC [Suspect]
     Indication: HYPERTENSION
     Route: 048
  3. DIOVANE [Suspect]
     Indication: HYPERTENSION
     Route: 048
  4. BIOFERMIN [Concomitant]

REACTIONS (4)
  - HEPATIC FAILURE [None]
  - HEPATIC STEATOSIS [None]
  - RENAL FAILURE [None]
  - TUMOUR MARKER INCREASED [None]
